FAERS Safety Report 9743194 (Version 2)
Quarter: 2015Q3

REPORT INFORMATION
  Report Type: Spontaneous
  Country: US (occurrence: US)
  Receive Date: 20131210
  Receipt Date: 20150804
  Transmission Date: 20151125
  Serious: No
  Sender: FDA-Public Use
  Company Number: US-GILEAD-2009-0024967

PATIENT
  Age: 59 Year
  Sex: Female
  Weight: 117.93 kg

DRUGS (16)
  1. RAMIPRIL. [Concomitant]
     Active Substance: RAMIPRIL
  2. HUMULIN L [Concomitant]
     Active Substance: INSULIN HUMAN
  3. HUMALOG [Concomitant]
     Active Substance: INSULIN LISPRO
  4. CRESTOR [Concomitant]
     Active Substance: ROSUVASTATIN CALCIUM
  5. SYNTHROID [Concomitant]
     Active Substance: LEVOTHYROXINE SODIUM
  6. LETAIRIS [Suspect]
     Active Substance: AMBRISENTAN
     Indication: PULMONARY ARTERIAL HYPERTENSION
     Route: 048
     Dates: start: 20091001
  7. VITAMIN D [Concomitant]
     Active Substance: CHOLECALCIFEROL
  8. LYRICA [Concomitant]
     Active Substance: PREGABALIN
  9. ROPINIROLE. [Concomitant]
     Active Substance: ROPINIROLE
  10. FUROSEMIDE. [Concomitant]
     Active Substance: FUROSEMIDE
  11. COREG [Concomitant]
     Active Substance: CARVEDILOL
  12. METHAZOLAMIDE. [Concomitant]
     Active Substance: METHAZOLAMIDE
  13. REVATIO [Concomitant]
     Active Substance: SILDENAFIL CITRATE
  14. SPIRONOLACTONE. [Concomitant]
     Active Substance: SPIRONOLACTONE
  15. AMITRIPTYLINE [Concomitant]
     Active Substance: AMITRIPTYLINE
  16. PILOCARPINE. [Concomitant]
     Active Substance: PILOCARPINE

REACTIONS (1)
  - Flushing [Unknown]
